FAERS Safety Report 21498762 (Version 2)
Quarter: 2022Q4

REPORT INFORMATION
  Report Type: Spontaneous
  Country: FR (occurrence: FR)
  Receive Date: 20221024
  Receipt Date: 20221123
  Transmission Date: 20230112
  Serious: Yes (Hospitalization, Other)
  Sender: FDA-Public Use
  Company Number: FR-NOVARTISPH-NVSC2022FR236359

PATIENT
  Age: 75 Year
  Sex: Male

DRUGS (4)
  1. BETAXOLOL [Suspect]
     Active Substance: BETAXOLOL
     Indication: Product used for unknown indication
     Dosage: 2 DOSAGE FORM 2 DAYS
     Route: 065
     Dates: start: 20221008, end: 20221009
  2. ABIRATERONE ACETATE [Suspect]
     Active Substance: ABIRATERONE ACETATE
     Indication: Product used for unknown indication
     Dosage: 2 UNK, UNK
     Route: 065
     Dates: start: 20221008, end: 20221009
  3. POLYETHYLENE GLYCOLS [Concomitant]
     Active Substance: POLYETHYLENE GLYCOLS
     Indication: Product used for unknown indication
     Dosage: UNK
     Route: 065
  4. LEVOTHYROXINE [Concomitant]
     Active Substance: LEVOTHYROXINE
     Indication: Product used for unknown indication
     Dosage: UNK
     Route: 065

REACTIONS (12)
  - Hypersensitivity [Unknown]
  - Angina pectoris [Recovering/Resolving]
  - Arrhythmia [Recovering/Resolving]
  - Tongue discomfort [Recovering/Resolving]
  - Fatigue [Unknown]
  - Abdominal distension [Recovering/Resolving]
  - Tongue pruritus [Recovering/Resolving]
  - Glossodynia [Recovering/Resolving]
  - Hot flush [Recovering/Resolving]
  - Swollen tongue [Recovering/Resolving]
  - Lip swelling [Recovering/Resolving]
  - Dyspnoea [Recovering/Resolving]

NARRATIVE: CASE EVENT DATE: 20221008
